FAERS Safety Report 15809391 (Version 1)
Quarter: 2019Q1

REPORT INFORMATION
  Report Type: Spontaneous
  Country: US (occurrence: US)
  Receive Date: 20190110
  Receipt Date: 20190110
  Transmission Date: 20190417
  Serious: No
  Sender: FDA-Public Use
  Company Number: US-AMGEN INC.-USASP2019003190

PATIENT
  Age: 48 Year
  Sex: Male

DRUGS (1)
  1. AIMOVIG [Suspect]
     Active Substance: ERENUMAB-AOOE
     Indication: MIGRAINE
     Dosage: 70 MG, QMO
     Route: 065
     Dates: start: 20181205

REACTIONS (3)
  - Accidental exposure to product [Unknown]
  - Product dose omission [Unknown]
  - Device expulsion [Unknown]

NARRATIVE: CASE EVENT DATE: 20190105
